FAERS Safety Report 7313758-9 (Version None)
Quarter: 2011Q1

REPORT INFORMATION
  Report Type: 
  Country: None (occurrence: None)
  Receive Date: 20110216
  Receipt Date: 20110216
  Transmission Date: 20110831
  Serious: Yes (Other)
  Sender: FDA-Public Use
  Company Number: None

PATIENT
  Age: 81 Year
  Sex: Female
  Weight: 74.3899 kg

DRUGS (1)
  1. BYSTOLIC [Suspect]
     Indication: HYPERTENSION
     Dosage: 1 TABLET DAILY PO
     Route: 048

REACTIONS (3)
  - NO THERAPEUTIC RESPONSE [None]
  - VISUAL ACUITY REDUCED [None]
  - THERAPY REGIMEN CHANGED [None]
